FAERS Safety Report 11319021 (Version 1)
Quarter: 2015Q3

REPORT INFORMATION
  Report Type: Spontaneous
  Country: US (occurrence: None)
  Receive Date: 20150727
  Receipt Date: 20150727
  Transmission Date: 20151125
  Serious: Yes (Disabling, Other)
  Sender: FDA-Public Use
  Company Number: None

PATIENT
  Age: 42 Year
  Sex: Female
  Weight: 62 kg

DRUGS (1)
  1. IMPLANON [Suspect]
     Active Substance: ETONOGESTREL
     Indication: CONTRACEPTION
     Dosage: GIVEN INTO/UNDER THE SKIN
     Dates: start: 20130913

REACTIONS (6)
  - Mood swings [None]
  - Menstruation irregular [None]
  - Fatigue [None]
  - Amenorrhoea [None]
  - Anxiety [None]
  - Menstrual disorder [None]
